FAERS Safety Report 4941190-1 (Version None)
Quarter: 2006Q1

REPORT INFORMATION
  Report Type: 
  Country: None (occurrence: None)
  Receive Date: 20060308
  Receipt Date: 20060224
  Transmission Date: 20060701
  Serious: Yes (Life-Threatening)
  Sender: FDA-Public Use
  Company Number: S06-UKI-00993-01

PATIENT
  Age: 55 Year
  Sex: Male

DRUGS (2)
  1. CIPRALEX (ESCITALOPRAM) [Suspect]
     Indication: DEPRESSION
     Dosage: 10 MG QD PO
     Route: 048
     Dates: start: 20050824, end: 20050831
  2. DONEPEZIL HCL [Concomitant]

REACTIONS (1)
  - GRAND MAL CONVULSION [None]
